FAERS Safety Report 8312960-7 (Version None)
Quarter: 2012Q2

REPORT INFORMATION
  Report Type: 
  Country: None (occurrence: None)
  Receive Date: 20120426
  Receipt Date: 20120417
  Transmission Date: 20120825
  Serious: Yes (Hospitalization)
  Sender: FDA-Public Use
  Company Number: JP-SANOFI-AVENTIS-2012SA021830

PATIENT
  Age: 90 Year
  Sex: Male

DRUGS (4)
  1. ATORVASTATIN CALCIUM [Suspect]
     Route: 048
  2. LANSOPRAZOLE [Suspect]
     Route: 065
  3. WARFARIN SODIUM [Suspect]
     Route: 065
  4. PLAVIX [Suspect]
     Route: 065

REACTIONS (1)
  - JAUNDICE [None]
